FAERS Safety Report 13940271 (Version 2)
Quarter: 2017Q3

REPORT INFORMATION
  Report Type: Report from Study
  Country: US (occurrence: US)
  Receive Date: 20170906
  Receipt Date: 20170918
  Transmission Date: 20171127
  Serious: Yes (Life-Threatening, Hospitalization)
  Sender: FDA-Public Use
  Company Number: US-EISAI MEDICAL RESEARCH-EC-2017-030861

PATIENT
  Age: 72 Year
  Sex: Female
  Weight: 75.8 kg

DRUGS (28)
  1. PEMBROLIZUMAB. [Suspect]
     Active Substance: PEMBROLIZUMAB
     Indication: ENDOMETRIAL CANCER
     Route: 041
     Dates: start: 20170724, end: 20170815
  2. ZOLPIDEM [Concomitant]
     Active Substance: ZOLPIDEM\ZOLPIDEM TARTRATE
  3. MORPHINE [Concomitant]
     Active Substance: MORPHINE
  4. CAPTOPRIL. [Concomitant]
     Active Substance: CAPTOPRIL
  5. JANUMET [Concomitant]
     Active Substance: METFORMIN HYDROCHLORIDE\SITAGLIPTIN PHOSPHATE
  6. LENVATINIB [Suspect]
     Active Substance: LENVATINIB
     Route: 048
     Dates: start: 201708, end: 201708
  7. LOSARTAN. [Concomitant]
     Active Substance: LOSARTAN
  8. ALPHAGAN P [Concomitant]
     Active Substance: BRIMONIDINE TARTRATE
  9. TRAVOPROST. [Concomitant]
     Active Substance: TRAVOPROST
  10. PANTOPRAZOLE [Concomitant]
     Active Substance: PANTOPRAZOLE
  11. VITAMIN D3 [Concomitant]
     Active Substance: CHOLECALCIFEROL
  12. DOCUSATE SODIUM. [Concomitant]
     Active Substance: DOCUSATE SODIUM
  13. MS CONTIN [Concomitant]
     Active Substance: MORPHINE SULFATE
  14. CITALOPRAM [Concomitant]
     Active Substance: CITALOPRAM HYDROBROMIDE
  15. LEVOTHYROXINE. [Concomitant]
     Active Substance: LEVOTHYROXINE
  16. AMLODIPINE [Concomitant]
     Active Substance: AMLODIPINE BESYLATE
  17. HYDROMORPHONE [Concomitant]
     Active Substance: HYDROMORPHONE
  18. LENVATINIB [Suspect]
     Active Substance: LENVATINIB
     Indication: ENDOMETRIAL CANCER
     Route: 048
     Dates: start: 20170724, end: 201708
  19. GABAPENTIN. [Concomitant]
     Active Substance: GABAPENTIN
  20. PREDNISONE. [Concomitant]
     Active Substance: PREDNISONE
  21. MAGNESIUM AMINO ACIDS CHELATE [Concomitant]
  22. IMODIUM [Concomitant]
     Active Substance: LOPERAMIDE HYDROCHLORIDE
  23. ASPIRIN. [Concomitant]
     Active Substance: ASPIRIN
  24. LORAZEPAM. [Concomitant]
     Active Substance: LORAZEPAM
  25. ATORVASTATIN [Concomitant]
     Active Substance: ATORVASTATIN
  26. TOPIRAMATE. [Concomitant]
     Active Substance: TOPIRAMATE
  27. ONDANSETRON [Concomitant]
     Active Substance: ONDANSETRON
  28. PROBIOTIC [Concomitant]
     Active Substance: PROBIOTICS NOS

REACTIONS (4)
  - Encephalopathy [Unknown]
  - Acute kidney injury [Unknown]
  - Confusional state [Not Recovered/Not Resolved]
  - Neuropathy peripheral [Not Recovered/Not Resolved]

NARRATIVE: CASE EVENT DATE: 20170822
